FAERS Safety Report 15214253 (Version 3)
Quarter: 2019Q1

REPORT INFORMATION
  Report Type: Report from Study
  Country: DE (occurrence: DE)
  Receive Date: 20180730
  Receipt Date: 20190103
  Transmission Date: 20190417
  Serious: Yes (Hospitalization)
  Sender: FDA-Public Use
  Company Number: DE-TORRENT-00009091

PATIENT
  Age: 63 Year
  Sex: Female
  Weight: 47 kg

DRUGS (3)
  1. CARBAMAZEPIN [Suspect]
     Active Substance: CARBAMAZEPINE
     Indication: PRODUCT USED FOR UNKNOWN INDICATION
     Dosage: 1-1-1
     Route: 065
  2. UBRETID [Suspect]
     Active Substance: DISTIGMINE BROMIDE
     Indication: PRODUCT USED FOR UNKNOWN INDICATION
     Dosage: 1-0-1
     Route: 065
  3. COPAXONE [Suspect]
     Active Substance: GLATIRAMER ACETATE
     Indication: MULTIPLE SCLEROSIS
     Dosage: 20 MILLIGRAM DAILY;
     Route: 058
     Dates: start: 20130207

REACTIONS (2)
  - Enteritis [Recovered/Resolved]
  - Subileus [Recovered/Resolved]

NARRATIVE: CASE EVENT DATE: 201711
